FAERS Safety Report 4758433-X (Version None)
Quarter: 2005Q3

REPORT INFORMATION
  Report Type: 
  Country: None (occurrence: None)
  Receive Date: 20050830
  Receipt Date: 20050830
  Transmission Date: 20060218
  Serious: Yes (Hospitalization)
  Sender: FDA-Public Use
  Company Number: None

PATIENT
  Age: 48 Year
  Sex: Male
  Weight: 93 kg

DRUGS (4)
  1. IBUPROFEN [Suspect]
     Indication: PAIN MANAGEMENT
     Dosage: 1000MG   Q 4-8 HOURS   PO
     Route: 048
     Dates: start: 20050610, end: 20050620
  2. ASPIRIN [Suspect]
     Indication: PAIN MANAGEMENT
     Dosage: PO
     Route: 048
  3. GLUCOSAMINE [Concomitant]
  4. MULTI-VITAMIN [Concomitant]

REACTIONS (6)
  - DIZZINESS [None]
  - DUODENAL ULCER HAEMORRHAGE [None]
  - DYSPNOEA [None]
  - FATIGUE [None]
  - GASTROINTESTINAL HAEMORRHAGE [None]
  - NAUSEA [None]
